FAERS Safety Report 7783043-X (Version None)
Quarter: 2011Q3

REPORT INFORMATION
  Report Type: 
  Country: None (occurrence: None)
  Receive Date: 20110928
  Receipt Date: 20110922
  Transmission Date: 20111222
  Serious: No
  Sender: FDA-Public Use
  Company Number: US-PFIZER INC-2011220020

PATIENT
  Sex: Female
  Weight: 54.4 kg

DRUGS (3)
  1. PREMARIN [Suspect]
     Indication: VULVOVAGINAL DRYNESS
     Dosage: UNK, DAILY FOR 7 DAYS
     Route: 067
     Dates: start: 20110701, end: 20110101
  2. PREMARIN [Suspect]
     Dosage: UNK, TWICE A WEEK
  3. LEVOTHYROXINE [Concomitant]
     Indication: THYROID DISORDER
     Dosage: 88 UG, DAILY

REACTIONS (1)
  - VULVOVAGINAL MYCOTIC INFECTION [None]
